FAERS Safety Report 8652382 (Version 3)
Quarter: 2013Q2

REPORT INFORMATION
  Report Type: Spontaneous
  Country: JP (occurrence: JP)
  Receive Date: 20120706
  Receipt Date: 20130402
  Transmission Date: 20140414
  Serious: Yes (Other)
  Sender: FDA-Public Use
  Company Number: JP-EISAI INC-E2020-11016-SPO-JP

PATIENT
  Age: 89 Year
  Sex: Male

DRUGS (10)
  1. ARICEPT [Suspect]
     Indication: DEMENTIA ALZHEIMER^S TYPE
     Route: 048
     Dates: end: 20120629
  2. FLENIED [Concomitant]
     Route: 048
     Dates: end: 20120629
  3. SYMMETREL [Concomitant]
     Route: 048
     Dates: end: 20120629
  4. POLYFUL [Concomitant]
     Route: 048
     Dates: end: 20120629
  5. SEFTAC [Concomitant]
     Route: 048
     Dates: end: 20120629
  6. ASPARA POTASSIUM [Concomitant]
     Route: 048
     Dates: end: 20120629
  7. LOPEMIN [Concomitant]
     Route: 048
     Dates: end: 20120629
  8. UROSULOL [Concomitant]
     Route: 048
  9. FEROTYM [Concomitant]
  10. BICALUTAMIDE [Concomitant]
     Route: 048

REACTIONS (2)
  - Miosis [Recovered/Resolved]
  - Convulsion [Recovered/Resolved]
